FAERS Safety Report 5320112-8 (Version None)
Quarter: 2007Q2

REPORT INFORMATION
  Report Type: 
  Country: None (occurrence: None)
  Receive Date: 20070503
  Receipt Date: 20070419
  Transmission Date: 20071010
  Serious: Yes (Hospitalization)
  Sender: FDA-Public Use
  Company Number: 2007MP000076

PATIENT
  Age: 76 Year
  Sex: Male
  Weight: 99.7913 kg

DRUGS (7)
  1. DACOGEN [Suspect]
     Indication: MYELODYSPLASTIC SYNDROME
     Dosage: 40 MG ; QD; IV
     Route: 042
     Dates: start: 20061113, end: 20061117
  2. DACOGEN [Suspect]
     Indication: MYELODYSPLASTIC SYNDROME
     Dosage: 40 MG ; QD; IV
     Route: 042
     Dates: start: 20061218, end: 20061222
  3. DACOGEN [Suspect]
     Indication: MYELODYSPLASTIC SYNDROME
     Dosage: 40 MG ; QD; IV
     Route: 042
     Dates: start: 20070122, end: 20070126
  4. KYTRIL [Concomitant]
  5. ZOLOFT [Concomitant]
  6. FLOMAX [Concomitant]
  7. PROTONIX [Concomitant]

REACTIONS (14)
  - ANOREXIA [None]
  - BACTERIA URINE IDENTIFIED [None]
  - BLOOD PRESSURE INCREASED [None]
  - CULTURE THROAT POSITIVE [None]
  - DIALYSIS [None]
  - HEADACHE [None]
  - INTERSTITIAL LUNG DISEASE [None]
  - PHOTOPHOBIA [None]
  - PROSTATITIS [None]
  - PULMONARY FIBROSIS [None]
  - RENAL FAILURE ACUTE [None]
  - RENAL TUBULAR NECROSIS [None]
  - SPUTUM CULTURE POSITIVE [None]
  - STAPHYLOCOCCAL INFECTION [None]
